FAERS Safety Report 4422831-4 (Version None)
Quarter: 2004Q3

REPORT INFORMATION
  Report Type: 
  Country: None (occurrence: None)
  Receive Date: 20040805
  Receipt Date: 20040728
  Transmission Date: 20050211
  Serious: Yes (Hospitalization)
  Sender: FDA-Public Use
  Company Number: 2004UW16079

PATIENT
  Age: 88 Year
  Sex: Female
  Weight: 52.1637 kg

DRUGS (8)
  1. PRILOSEC OTC [Suspect]
     Indication: OESOPHAGEAL ULCER
     Dosage: 1 DF BID PO
     Route: 048
     Dates: start: 20030728
  2. LOTREL [Concomitant]
  3. ASPIRIN [Concomitant]
  4. SEROQUEL [Concomitant]
  5. TRAMADOL HCL [Concomitant]
  6. TOPROL-XL [Concomitant]
  7. ALPRAZOLAM [Concomitant]
  8. VICODIN [Concomitant]

REACTIONS (4)
  - HAEMATEMESIS [None]
  - INFLAMMATION [None]
  - NAUSEA [None]
  - PYREXIA [None]
